FAERS Safety Report 4592491-0 (Version None)
Quarter: 2005Q1

REPORT INFORMATION
  Report Type: 
  Country: None (occurrence: None)
  Receive Date: 20050222
  Receipt Date: 20050209
  Transmission Date: 20050727
  Serious: Yes (Other)
  Sender: FDA-Public Use
  Company Number: 2005027972

PATIENT
  Sex: Female
  Weight: 70.7611 kg

DRUGS (7)
  1. DETROL LA [Suspect]
     Indication: HYPERTONIC BLADDER
     Dosage: 4 MG (4 MG, DAILY), ORAL
     Route: 048
     Dates: start: 20030101
  2. DETROL LA [Suspect]
     Indication: URGE INCONTINENCE
     Dosage: 4 MG (4 MG, DAILY), ORAL
     Route: 048
     Dates: start: 20030101
  3. SULFA PLUS (CLIOQUINOL, PAPAVERINE HYDROCHLORIDE, SULFAGUANIDINE, VITA [Concomitant]
  4. CONJUGATED ESTROGENS [Concomitant]
  5. CANDESARTAN CILEXETIL (CANDESARTAN CILEXETIL) [Concomitant]
  6. CLOPIDOGREL BISULFATE [Concomitant]
  7. ACETAMINOPHEN [Concomitant]

REACTIONS (2)
  - DRUG INEFFECTIVE [None]
  - SURGERY [None]
